FAERS Safety Report 9484867 (Version 1)
Quarter: 2013Q3

REPORT INFORMATION
  Report Type: Spontaneous
  Country: US (occurrence: US)
  Receive Date: 20130828
  Receipt Date: 20130828
  Transmission Date: 20140515
  Serious: Yes (Other)
  Sender: FDA-Public Use
  Company Number: US-BAYER-2013-103092

PATIENT
  Sex: 0

DRUGS (1)
  1. BAYER EXTRA STRENGTH BACK + BODY PAIN [Suspect]
     Indication: HEADACHE
     Dosage: 500 MG, BID
     Route: 048

REACTIONS (2)
  - Gingival bleeding [None]
  - Coagulopathy [None]
